FAERS Safety Report 6923927-5 (Version None)
Quarter: 2010Q3

REPORT INFORMATION
  Report Type: 
  Country: None (occurrence: None)
  Receive Date: 20100813
  Receipt Date: 20100803
  Transmission Date: 20110219
  Serious: Yes (Hospitalization)
  Sender: FDA-Public Use
  Company Number: ES-ELI_LILLY_AND_COMPANY-ES201008000896

PATIENT
  Sex: Female

DRUGS (4)
  1. FORTEO [Suspect]
     Indication: OSTEOPOROSIS
     Dosage: 20 UG, DAILY (1/D)
     Route: 058
     Dates: start: 20091101, end: 20100623
  2. LYRICA [Concomitant]
     Dosage: UNK, DAILY (1/D)
     Route: 048
  3. COROPRES [Concomitant]
     Route: 062
  4. SEGURIL [Concomitant]
     Indication: HYPERTENSION
     Dosage: UNK, DAILY (1/D)
     Route: 048

REACTIONS (4)
  - AORTIC DISORDER [None]
  - BRONCHITIS [None]
  - DIABETES MELLITUS [None]
  - FATIGUE [None]
